FAERS Safety Report 5588595-6 (Version None)
Quarter: 2008Q1

REPORT INFORMATION
  Report Type: 
  Country: None (occurrence: None)
  Receive Date: 20080111
  Receipt Date: 20080103
  Transmission Date: 20080703
  Serious: Yes (Other)
  Sender: FDA-Public Use
  Company Number: HU-PFIZER INC-2008001728

PATIENT
  Sex: Female

DRUGS (1)
  1. ZOLOFT [Suspect]
     Indication: DEPRESSION
     Dosage: TEXT:25 OR 50 MILLIGRAMS DAILY
     Route: 048

REACTIONS (2)
  - ABORTION INDUCED [None]
  - INTRA-UTERINE DEATH [None]
